FAERS Safety Report 8450582-8 (Version None)
Quarter: 2012Q2

REPORT INFORMATION
  Report Type: 
  Country: None (occurrence: None)
  Receive Date: 20120620
  Receipt Date: 20120614
  Transmission Date: 20120825
  Serious: Yes (Hospitalization, Other)
  Sender: FDA-Public Use
  Company Number: US-PFIZER INC-2012144282

PATIENT
  Sex: Female

DRUGS (5)
  1. PRAVASTATIN [Concomitant]
     Dosage: UNK
  2. PLAVIX [Concomitant]
     Dosage: UNK
  3. LYRICA [Suspect]
     Indication: NEUROPATHY PERIPHERAL
     Dosage: 300 MG, 1X/DAY
     Route: 048
     Dates: start: 20120229, end: 20120101
  4. GEMFIBROZIL [Concomitant]
     Dosage: UNK
  5. LYRICA [Suspect]
     Dosage: 300 MG, 3X/DAY
     Route: 048
     Dates: start: 20120101

REACTIONS (13)
  - HEPATIC ENZYME INCREASED [None]
  - CEREBROVASCULAR ACCIDENT [None]
  - SYNCOPE [None]
  - CONVULSION [None]
  - MEMORY IMPAIRMENT [None]
  - FEELING ABNORMAL [None]
  - ECCHYMOSIS [None]
  - BACK INJURY [None]
  - BLOOD TRIGLYCERIDES DECREASED [None]
  - OVERDOSE [None]
  - LOSS OF CONSCIOUSNESS [None]
  - SOMNOLENCE [None]
  - BALANCE DISORDER [None]
